FAERS Safety Report 9971238 (Version 1)
Quarter: 2014Q1

REPORT INFORMATION
  Report Type: Report from Study
  Country: US (occurrence: US)
  Receive Date: 20140306
  Receipt Date: 20140306
  Transmission Date: 20141002
  Serious: No
  Sender: FDA-Public Use
  Company Number: US-ABBVIE-13P-163-1149716-00

PATIENT
  Age: 63 Year
  Sex: Male
  Weight: 122.58 kg

DRUGS (4)
  1. HUMIRA [Suspect]
     Indication: PSORIASIS
     Dosage: LOADING DOSE
     Dates: start: 201308, end: 201308
  2. OXYCODONE [Concomitant]
     Indication: PAIN
  3. UNKNOWN DIABETIC MEDICATION [Concomitant]
     Indication: DIABETES MELLITUS
     Route: 048
  4. UNKNOWN BLOOD PRESSURE MEDICATION [Concomitant]
     Indication: HYPERTENSION

REACTIONS (1)
  - Diarrhoea [Recovered/Resolved]
